FAERS Safety Report 20001906 (Version 1)
Quarter: 2021Q4

REPORT INFORMATION
  Report Type: Spontaneous
  Country: US (occurrence: US)
  Receive Date: 20211027
  Receipt Date: 20211027
  Transmission Date: 20220303
  Serious: Yes (Other)
  Sender: FDA-Public Use
  Company Number: US-GLAXOSMITHKLINE-US2021AMR219307

PATIENT
  Sex: Female

DRUGS (3)
  1. ZEJULA [Suspect]
     Active Substance: NIRAPARIB
     Indication: Ovarian cancer
     Dosage: 200 MG, QD
     Dates: start: 20201221
  2. ZEJULA [Suspect]
     Active Substance: NIRAPARIB
     Dosage: 100 MG, QD
     Dates: start: 202101, end: 2021
  3. ZEJULA [Suspect]
     Active Substance: NIRAPARIB
     Dosage: 100 MG, QD

REACTIONS (8)
  - Brain neoplasm [Unknown]
  - Nausea [Recovered/Resolved]
  - Anxiety [Unknown]
  - COVID-19 [Unknown]
  - Decreased appetite [Recovered/Resolved]
  - White coat hypertension [Unknown]
  - Heart rate increased [Unknown]
  - Platelet count decreased [Recovered/Resolved]
